FAERS Safety Report 15989308 (Version 2)
Quarter: 2019Q2

REPORT INFORMATION
  Report Type: Spontaneous
  Country: US (occurrence: US)
  Receive Date: 20190221
  Receipt Date: 20190403
  Transmission Date: 20190711
  Serious: Yes (Death, Hospitalization)
  Sender: FDA-Public Use
  Company Number: US-SAREPTA THERAPEUTICS, INC-SRP-000023-2019

PATIENT
  Age: 21 Year
  Sex: Male
  Weight: 49.6 kg

DRUGS (1)
  1. EXONDYS 51 [Suspect]
     Active Substance: ETEPLIRSEN
     Indication: DUCHENNE MUSCULAR DYSTROPHY
     Dosage: 1500 MG, WEEKLY
     Route: 042
     Dates: start: 20170816

REACTIONS (1)
  - Death [Fatal]

NARRATIVE: CASE EVENT DATE: 20190321
